FAERS Safety Report 9841750 (Version 1)
Quarter: 2013Q4

REPORT INFORMATION
  Report Type: Spontaneous
  Country: US (occurrence: None)
  Receive Date: 20131219
  Receipt Date: 20131219
  Transmission Date: 20140711
  Serious: Yes (Hospitalization, Other)
  Sender: FDA-Public Use
  Company Number: 163-20785-12111113

PATIENT
  Age: 80 Year
  Sex: Female

DRUGS (3)
  1. THALOMID [Suspect]
     Indication: PLASMA CELL MYELOMA
     Dosage: 1 IN 1 D
     Route: 048
     Dates: start: 201110, end: 201204
  2. MELPHALAN [Concomitant]
  3. PREDNISONE [Concomitant]

REACTIONS (4)
  - Renal failure chronic [None]
  - Blood creatinine increased [None]
  - Hypotension [None]
  - Accidental overdose [None]
